FAERS Safety Report 8564256-6 (Version None)
Quarter: 2012Q3

REPORT INFORMATION
  Report Type: 
  Country: None (occurrence: None)
  Receive Date: 20120803
  Receipt Date: 20120724
  Transmission Date: 20120928
  Serious: Yes (Other)
  Sender: FDA-Public Use
  Company Number: JP-JNJFOC-20120712906

PATIENT

DRUGS (2)
  1. TOPIRAMATE [Suspect]
     Indication: EPILEPSY
     Route: 065
  2. TOPIRAMATE [Suspect]
     Route: 065

REACTIONS (8)
  - GLOSSOPTOSIS [None]
  - SOMNOLENCE [None]
  - DECREASED APPETITE [None]
  - WEIGHT DECREASED [None]
  - DYSPNOEA [None]
  - HYPOTONIA [None]
  - CONVULSION [None]
  - IRRITABILITY [None]
